FAERS Safety Report 4342324-2 (Version None)
Quarter: 2004Q2

REPORT INFORMATION
  Report Type: 
  Country: None (occurrence: None)
  Receive Date: 20040416
  Receipt Date: 20040402
  Transmission Date: 20050107
  Serious: Yes (Hospitalization)
  Sender: FDA-Public Use
  Company Number: 2004SP000065

PATIENT
  Age: 69 Year
  Sex: Male
  Weight: 100.0635 kg

DRUGS (3)
  1. XOPENEX [Suspect]
     Indication: ASTHMA
     Dosage: 1.25 MG; Q6H; INHALATION
     Route: 055
     Dates: start: 20040301, end: 20040301
  2. METHYLPREDNISOLONE [Concomitant]
  3. CALCIUM ACETATE [Concomitant]

REACTIONS (3)
  - ASTHMA [None]
  - SICK SINUS SYNDROME [None]
  - SINUS ARREST [None]
